FAERS Safety Report 5716367-8 (Version None)
Quarter: 2008Q2

REPORT INFORMATION
  Report Type: 
  Country: None (occurrence: None)
  Receive Date: 20080424
  Receipt Date: 20080414
  Transmission Date: 20081010
  Serious: Yes (Other)
  Sender: FDA-Public Use
  Company Number: PHHO2008GB02277

PATIENT
  Age: 57 Year
  Sex: Female
  Weight: 82.5 kg

DRUGS (2)
  1. ZOLEDRONIC ACID [Suspect]
     Indication: METASTASES TO BONE
     Dosage: 4 MG
     Route: 042
     Dates: start: 20040813, end: 20070814
  2. ANTIBIOTICS [Concomitant]

REACTIONS (13)
  - BACTERIAL INFECTION [None]
  - ERYTHEMA [None]
  - METASTATIC NEOPLASM [None]
  - NERVE ROOT INJURY [None]
  - ORAL PUSTULE [None]
  - OSTEOLYSIS [None]
  - OSTEONECROSIS [None]
  - OSTEORADIONECROSIS [None]
  - PAIN [None]
  - PARAESTHESIA [None]
  - RESORPTION BONE INCREASED [None]
  - SWELLING [None]
  - TOOTH EXTRACTION [None]
